FAERS Safety Report 9409276 (Version 2)
Quarter: 2013Q3

REPORT INFORMATION
  Report Type: Spontaneous
  Country: US (occurrence: None)
  Receive Date: 20130409
  Receipt Date: 20130815
  Transmission Date: 20140515
  Serious: Yes (Hospitalization)
  Sender: FDA-Public Use
  Company Number: ADR-2009-6445

PATIENT
  Age: 33 Year
  Sex: Female

DRUGS (1)
  1. LIORESAL [Suspect]
     Indication: MUSCLE RELAXANT THERAPY
     Route: 037

REACTIONS (12)
  - Drug withdrawal syndrome [None]
  - Body temperature increased [None]
  - Heart rate increased [None]
  - Muscle spasticity [None]
  - Muscle rigidity [None]
  - Medical device complication [None]
  - Pyrexia [None]
  - Pruritus [None]
  - Cognitive disorder [None]
  - Pain [None]
  - Drug withdrawal syndrome [None]
  - Muscle twitching [None]
